FAERS Safety Report 15436628 (Version 22)
Quarter: 2021Q2

REPORT INFORMATION
  Report Type: Spontaneous
  Country: US (occurrence: US)
  Receive Date: 20180927
  Receipt Date: 20210624
  Transmission Date: 20210716
  Serious: Yes (Other)
  Sender: FDA-Public Use
  Company Number: US-PFIZER INC-2018389633

PATIENT
  Age: 77 Year
  Sex: Female

DRUGS (7)
  1. LYRICA [Suspect]
     Active Substance: PREGABALIN
     Indication: NEUROPATHY PERIPHERAL
     Dosage: 150 MG, DAILY (50 IN THE MORNING AND 100 AT NIGHT)
  2. LYRICA [Suspect]
     Active Substance: PREGABALIN
     Indication: SYSTEMIC LUPUS ERYTHEMATOSUS
     Dosage: 250 MG, DAILY (2 OF 100 MG AT NIGHT AND 50 MG DURING THE DAY)
  3. LYRICA [Suspect]
     Active Substance: PREGABALIN
     Indication: CUTANEOUS LUPUS ERYTHEMATOSUS
     Dosage: 350 MG
  4. LYRICA [Suspect]
     Active Substance: PREGABALIN
     Indication: PAIN
     Dosage: 100 MG ONCE DAILY (ONE CAP PO QHS [EVERY BEDTIME)
     Route: 048
  5. EFFEXOR [Concomitant]
     Active Substance: VENLAFAXINE HYDROCHLORIDE
     Indication: ANXIETY
     Dosage: UNK, 2X/DAY
  6. PLAQUENIL [Concomitant]
     Active Substance: HYDROXYCHLOROQUINE SULFATE
     Dosage: UNK
  7. LYRICA [Suspect]
     Active Substance: PREGABALIN
     Dosage: 50 MG ONCE DAILY (ONE CAP PO QAM[EVERY MORNING])
     Route: 048

REACTIONS (39)
  - Breast cancer stage IV [Unknown]
  - Dysstasia [Unknown]
  - Blood test abnormal [Unknown]
  - Lymphadenopathy [Unknown]
  - Pruritus [Unknown]
  - Gait disturbance [Unknown]
  - Musculoskeletal disorder [Unknown]
  - Balance disorder [Unknown]
  - Fall [Unknown]
  - Bronchitis [Unknown]
  - Drug dependence [Unknown]
  - Condition aggravated [Unknown]
  - Somnolence [Unknown]
  - Eye disorder [Unknown]
  - Ankylosing spondylitis [Unknown]
  - Uterine cancer [Unknown]
  - Multiple sclerosis [Unknown]
  - Malaise [Unknown]
  - Psoriasis [Unknown]
  - Joint swelling [Unknown]
  - Liver disorder [Unknown]
  - Social avoidant behaviour [Unknown]
  - Influenza [Unknown]
  - Pleural effusion [Unknown]
  - Arthralgia [Unknown]
  - Peripheral swelling [Unknown]
  - Alopecia [Unknown]
  - Nervousness [Unknown]
  - Thyroid disorder [Unknown]
  - Bone disorder [Unknown]
  - Pain [Unknown]
  - Skin depigmentation [Unknown]
  - Cough [Unknown]
  - Renal disorder [Unknown]
  - Intentional product use issue [Unknown]
  - Mental impairment [Unknown]
  - Dizziness [Unknown]
  - Autoimmune disorder [Unknown]
  - Burning sensation [Unknown]
